FAERS Safety Report 11961228 (Version 1)
Quarter: 2016Q1

REPORT INFORMATION
  Report Type: Spontaneous
  Country: US (occurrence: US)
  Receive Date: 20160126
  Receipt Date: 20160126
  Transmission Date: 20160526
  Serious: Yes (Hospitalization)
  Sender: FDA-Public Use
  Company Number: US-BEH-2016057870

PATIENT
  Sex: Female
  Weight: 67 kg

DRUGS (22)
  1. EPIPEN [Concomitant]
     Active Substance: EPINEPHRINE
  2. CALTRATE WITH VITAMIN D [Concomitant]
     Active Substance: CALCIUM CARBONATE\CHOLECALCIFEROL
  3. VITAMIN C [Concomitant]
     Active Substance: ASCORBIC ACID
  4. ASMANEX [Concomitant]
     Active Substance: MOMETASONE FUROATE
  5. HIZENTRA [Suspect]
     Active Substance: HUMAN IMMUNOGLOBULIN G
     Route: 058
  6. HIZENTRA [Suspect]
     Active Substance: HUMAN IMMUNOGLOBULIN G
     Route: 058
  7. ZETIA [Concomitant]
     Active Substance: EZETIMIBE
  8. LIDOCAINE/PRILOCAINE [Concomitant]
  9. OXYGEN. [Concomitant]
     Active Substance: OXYGEN
  10. COZAAR [Concomitant]
     Active Substance: LOSARTAN POTASSIUM
  11. CENTRUM SILVER [Concomitant]
     Active Substance: MINERALS\VITAMINS
  12. EFFEXOR XR [Concomitant]
     Active Substance: VENLAFAXINE HYDROCHLORIDE
  13. FORADIL [Concomitant]
     Active Substance: FORMOTEROL FUMARATE
  14. ASPIRIN EC [Concomitant]
     Active Substance: ASPIRIN
  15. AMBIEN [Concomitant]
     Active Substance: ZOLPIDEM TARTRATE
  16. LIPITOR [Concomitant]
     Active Substance: ATORVASTATIN CALCIUM
  17. SPIRIVA [Concomitant]
     Active Substance: TIOTROPIUM BROMIDE MONOHYDRATE
  18. PLAVIX [Concomitant]
     Active Substance: CLOPIDOGREL BISULFATE
  19. HIZENTRA [Suspect]
     Active Substance: HUMAN IMMUNOGLOBULIN G
     Indication: IMMUNODEFICIENCY COMMON VARIABLE
     Route: 058
  20. DIPHENHYDRAMINE. [Concomitant]
     Active Substance: DIPHENHYDRAMINE
  21. LIDOCAINE. [Concomitant]
     Active Substance: LIDOCAINE
  22. CARDIZEM [Concomitant]
     Active Substance: DILTIAZEM HYDROCHLORIDE

REACTIONS (2)
  - Cardiac monitoring [Unknown]
  - Stent placement [Unknown]
